FAERS Safety Report 11909542 (Version 2)
Quarter: 2016Q3

REPORT INFORMATION
  Report Type: Spontaneous
  Country: US (occurrence: US)
  Receive Date: 20160112
  Receipt Date: 20160713
  Transmission Date: 20161109
  Serious: Yes (Other)
  Sender: FDA-Public Use
  Company Number: US-ASTRAZENECA-2016SE00489

PATIENT
  Age: 84 Year
  Sex: Female

DRUGS (11)
  1. ADVAIR HFA [Suspect]
     Active Substance: FLUTICASONE PROPIONATE\SALMETEROL XINAFOATE
     Indication: ADVERSE DRUG REACTION
     Dosage: 500/50 MCG
     Route: 065
     Dates: start: 2009
  2. ALLEGRA [Concomitant]
     Active Substance: FEXOFENADINE HYDROCHLORIDE
  3. TEMAZEPAM. [Concomitant]
     Active Substance: TEMAZEPAM
  4. SYMBICORT [Suspect]
     Active Substance: BUDESONIDE\FORMOTEROL FUMARATE DIHYDRATE
     Dosage: DOSE AND FREQUENCY UNKNOWN UNKNOWN
     Route: 055
  5. ADVAIR HFA [Suspect]
     Active Substance: FLUTICASONE PROPIONATE\SALMETEROL XINAFOATE
     Indication: ANAPHYLACTIC REACTION
     Dosage: 500/50 MCG
     Route: 065
     Dates: start: 2009
  6. SEREVENT DISKUS [Suspect]
     Active Substance: SALMETEROL XINAFOATE
     Indication: DYSPNOEA
     Dosage: 1 PUFF TWO TIMES A DAY
     Route: 065
     Dates: start: 1975
  7. SEREVENT DISKUS [Suspect]
     Active Substance: SALMETEROL XINAFOATE
     Indication: ANAPHYLACTIC REACTION
     Dosage: 1 PUFF TWO TIMES A DAY
     Route: 065
     Dates: start: 1975
  8. SEREVENT DISKUS [Suspect]
     Active Substance: SALMETEROL XINAFOATE
     Indication: ADVERSE DRUG REACTION
     Dosage: 1 PUFF TWO TIMES A DAY
     Route: 065
     Dates: start: 1975
  9. NASONEX [Suspect]
     Active Substance: MOMETASONE FUROATE
     Route: 065
  10. EVISTA [Concomitant]
     Active Substance: RALOXIFENE HYDROCHLORIDE
  11. FLOVENT [Suspect]
     Active Substance: FLUTICASONE PROPIONATE
     Route: 065
     Dates: start: 1975, end: 2015

REACTIONS (9)
  - Dysphagia [Recovering/Resolving]
  - Hiccups [Recovering/Resolving]
  - Drug hypersensitivity [Unknown]
  - Macular degeneration [Not Recovered/Not Resolved]
  - Salivary hypersecretion [Recovering/Resolving]
  - Pulmonary function test decreased [Unknown]
  - Back pain [Not Recovered/Not Resolved]
  - Osteoporosis [Not Recovered/Not Resolved]
  - Lacrimation increased [Unknown]

NARRATIVE: CASE EVENT DATE: 2012
